FAERS Safety Report 25464833 (Version 3)
Quarter: 2025Q3

REPORT INFORMATION
  Report Type: Spontaneous
  Country: EU (occurrence: EU)
  Receive Date: 20250622
  Receipt Date: 20250723
  Transmission Date: 20251020
  Serious: Yes (Other)
  Sender: AUROBINDO
  Company Number: EU-MYLANLABS-2025M1036277

PATIENT
  Age: 29 Year
  Sex: Male
  Weight: 105 kg

DRUGS (19)
  1. OLANZAPINE [Suspect]
     Active Substance: OLANZAPINE
     Indication: Hallucination, auditory
     Route: 065
     Dates: start: 2021
  2. OLANZAPINE [Suspect]
     Active Substance: OLANZAPINE
     Indication: Mental disorder
     Route: 065
     Dates: start: 202112
  3. OLANZAPINE [Suspect]
     Active Substance: OLANZAPINE
     Route: 065
     Dates: start: 202112
  4. OLANZAPINE [Suspect]
     Active Substance: OLANZAPINE
     Route: 065
     Dates: start: 202405
  5. OLANZAPINE [Suspect]
     Active Substance: OLANZAPINE
     Route: 065
     Dates: start: 202412
  6. OLANZAPINE [Suspect]
     Active Substance: OLANZAPINE
     Route: 065
  7. OLANZAPINE [Suspect]
     Active Substance: OLANZAPINE
     Route: 065
  8. ESCITALOPRAM [Suspect]
     Active Substance: ESCITALOPRAM OXALATE
     Indication: Mental disorder
     Route: 065
     Dates: start: 202112
  9. ESCITALOPRAM [Suspect]
     Active Substance: ESCITALOPRAM OXALATE
     Indication: Hallucination, auditory
     Route: 065
  10. ESCITALOPRAM [Suspect]
     Active Substance: ESCITALOPRAM OXALATE
     Route: 065
  11. CARIPRAZINE [Suspect]
     Active Substance: CARIPRAZINE
     Indication: Derealisation
     Dosage: 1.5 MILLIGRAM, ONCE A DAY
     Route: 065
     Dates: start: 202307
  12. CARIPRAZINE [Suspect]
     Active Substance: CARIPRAZINE
     Indication: Mental disorder
     Route: 065
     Dates: start: 202405
  13. CARIPRAZINE [Suspect]
     Active Substance: CARIPRAZINE
     Indication: Hallucination, auditory
     Dosage: 3 MILLIGRAM, ONCE A DAY
     Route: 065
     Dates: start: 202401
  14. CARIPRAZINE [Suspect]
     Active Substance: CARIPRAZINE
     Route: 065
  15. RISPERIDONE [Suspect]
     Active Substance: RISPERIDONE
     Indication: Hallucination, auditory
     Dosage: 4 MILLIGRAM, ONCE A DAY
     Route: 065
     Dates: start: 2021
  16. CANNABIS SATIVA SUBSP. INDICA TOP [Suspect]
     Active Substance: CANNABIS SATIVA SUBSP. INDICA TOP
     Indication: Product used for unknown indication
     Route: 065
     Dates: start: 2018
  17. CANNABIS SATIVA SUBSP. INDICA TOP [Suspect]
     Active Substance: CANNABIS SATIVA SUBSP. INDICA TOP
     Route: 065
     Dates: start: 202112
  18. ALCOHOL [Suspect]
     Active Substance: ALCOHOL
     Indication: Hepatic enzyme increased
     Route: 065
  19. PREGABALIN [Concomitant]
     Active Substance: PREGABALIN
     Indication: Product used for unknown indication
     Route: 065

REACTIONS (11)
  - Mental impairment [Unknown]
  - Sedation [Unknown]
  - Depression [Unknown]
  - Condition aggravated [Unknown]
  - Insomnia [Unknown]
  - Weight increased [Recovering/Resolving]
  - Cognitive disorder [Unknown]
  - Negative symptoms in schizophrenia [Unknown]
  - Derealisation [Unknown]
  - Drug withdrawal syndrome [Unknown]
  - Withdrawal syndrome [Recovered/Resolved]

NARRATIVE: CASE EVENT DATE: 20210101
